FAERS Safety Report 7379162-2 (Version None)
Quarter: 2011Q1

REPORT INFORMATION
  Report Type: 
  Country: None (occurrence: None)
  Receive Date: 20110328
  Receipt Date: 20110315
  Transmission Date: 20110831
  Serious: Yes (Other)
  Sender: FDA-Public Use
  Company Number: PHHY2011BR22470

PATIENT
  Sex: Male

DRUGS (2)
  1. CYCLOSPORINE [Suspect]
     Indication: MUSCULAR WEAKNESS
     Dosage: UNK
  2. CYCLOSPORINE [Suspect]

REACTIONS (3)
  - RENAL PAIN [None]
  - GAIT DISTURBANCE [None]
  - DRUG INEFFECTIVE [None]
